FAERS Safety Report 9406564 (Version 1)
Quarter: 2013Q3

REPORT INFORMATION
  Report Type: Spontaneous
  Country: US (occurrence: US)
  Receive Date: 20130718
  Receipt Date: 20130718
  Transmission Date: 20140515
  Serious: No
  Sender: FDA-Public Use
  Company Number: US-BAYER-2013-086247

PATIENT
  Sex: Female

DRUGS (5)
  1. BETASERON [Suspect]
     Dosage: 0.25 MG, QOD
     Route: 058
  2. GABAPENTIN [Concomitant]
     Dosage: 400 MG, UNK
  3. FIORICET [Concomitant]
  4. ZANAFLEX [Concomitant]
     Dosage: 6 MG, UNK
  5. BIOTIN [Concomitant]
     Dosage: 5000

REACTIONS (4)
  - Strabismus [Unknown]
  - Headache [Unknown]
  - Paraesthesia [Unknown]
  - Pain in extremity [Unknown]
